FAERS Safety Report 22078273 (Version 2)
Quarter: 2024Q3

REPORT INFORMATION
  Report Type: Report from Study
  Country: US (occurrence: US)
  Receive Date: 20230309
  Receipt Date: 20240716
  Transmission Date: 20241016
  Serious: Yes (Hospitalization, Other)
  Sender: ABBVIE
  Company Number: US-ABBVIE-4325323

PATIENT
  Age: 67 Year
  Sex: Male
  Weight: 75 kg

DRUGS (2)
  1. HUMIRA [Suspect]
     Active Substance: ADALIMUMAB
     Indication: Rheumatoid arthritis
     Dosage: 40MG, CITRATE FREE
     Route: 058
     Dates: start: 20210201
  2. HUMIRA [Suspect]
     Active Substance: ADALIMUMAB
     Dosage: 40MG, CITRATE FREE
     Route: 058
     Dates: start: 20220328

REACTIONS (6)
  - COVID-19 [Not Recovered/Not Resolved]
  - COVID-19 pneumonia [Unknown]
  - Pneumonia [Recovered/Resolved]
  - Oxygen saturation decreased [Recovering/Resolving]
  - Pneumonia [Recovering/Resolving]
  - Pulmonary fibrosis [Unknown]

NARRATIVE: CASE EVENT DATE: 20210301
